FAERS Safety Report 24121495 (Version 2)
Quarter: 2025Q3

REPORT INFORMATION
  Report Type: Report from Study
  Country: US (occurrence: US)
  Receive Date: 20240722
  Receipt Date: 20250908
  Transmission Date: 20251020
  Serious: Yes (Hospitalization)
  Sender: PFIZER
  Company Number: US-PFIZER INC-PV202400093462

PATIENT
  Age: 85 Year
  Sex: Male

DRUGS (1)
  1. VYNDAMAX [Suspect]
     Active Substance: TAFAMIDIS

REACTIONS (3)
  - Atrial fibrillation [Unknown]
  - Erythema [Unknown]
  - Hot flush [Unknown]
